FAERS Safety Report 24784012 (Version 2)
Quarter: 2025Q3

REPORT INFORMATION
  Report Type: Spontaneous
  Country: CN (occurrence: CN)
  Receive Date: 20241227
  Receipt Date: 20250809
  Transmission Date: 20251021
  Serious: Yes (Other)
  Sender: ALEXION PHARMACEUTICALS
  Company Number: CN-ASTRAZENECA-202412CHN022028CN

PATIENT
  Age: 65 Year
  Sex: Male
  Weight: 65 kg

DRUGS (2)
  1. PULMICORT RESPULES [Suspect]
     Active Substance: BUDESONIDE
     Indication: Pneumonia
     Dosage: 1 MILLIGRAM, TID
     Dates: start: 20240606, end: 20240608
  2. TERBUTALINE [Suspect]
     Active Substance: TERBUTALINE
     Indication: Pneumonia
     Dosage: 5 MILLIGRAM, TID
     Dates: start: 20240606, end: 20240607

REACTIONS (2)
  - Cough [Recovering/Resolving]
  - Asphyxia [Recovering/Resolving]

NARRATIVE: CASE EVENT DATE: 20240608
